FAERS Safety Report 4821219-1 (Version None)
Quarter: 2005Q4

REPORT INFORMATION
  Report Type: 
  Country: None (occurrence: None)
  Receive Date: 20051107
  Receipt Date: 20051003
  Transmission Date: 20060501
  Serious: Yes (Hospitalization)
  Sender: FDA-Public Use
  Company Number: US-BOEHRINGER INGELHEIM PHARMACEUTICALS, INC.-2005-BP-17537BP

PATIENT
  Sex: Male
  Weight: 60.8 kg

DRUGS (5)
  1. TIPRANAVIR / RITONAVIR CAPSULES [Suspect]
     Indication: HIV INFECTION
     Dosage: TPV/R 1000/400 MG DAILY
     Route: 048
     Dates: start: 20030916
  2. PRIMAQUINE [Suspect]
     Indication: PROPHYLAXIS
     Route: 048
     Dates: start: 20050712, end: 20050812
  3. ATOVAQUONE [Suspect]
     Indication: PROPHYLAXIS
     Route: 048
     Dates: start: 20050627, end: 20050808
  4. TENOFOVIR [Concomitant]
     Indication: HIV INFECTION
     Route: 048
     Dates: start: 20030916
  5. LAMIVUDINE [Concomitant]
     Indication: HIV INFECTION
     Route: 048
     Dates: start: 20030916

REACTIONS (2)
  - PNEUMOCYSTIS JIROVECI PNEUMONIA [None]
  - PNEUMOTHORAX [None]
